FAERS Safety Report 8686463 (Version 2)
Quarter: 2012Q4

REPORT INFORMATION
  Report Type: 
  Country: US (occurrence: US)
  Receive Date: 20120726
  Receipt Date: 20120914
  Transmission Date: 20130627
  Serious: Yes (Death, Other)
  Sender: FDA-Public Use
  Company Number: US-PFIZER INC-2012178264

PATIENT
  Age: 75 Year
  Sex: Male
  Weight: 45.81 kg

DRUGS (10)
  1. CADUET [Suspect]
     Indication: BLOOD CHOLESTEROL INCREASED
     Dosage: UNK, 9 AM
  2. ACCUPRIL [Suspect]
     Indication: HYPERTENSION
     Dosage: 40 mg, UNK
  3. ACCUPRIL [Suspect]
     Dosage: 20 mg, 1x/day
  4. BABY ASPIRIN [Concomitant]
     Dosage: 81 mg, 1x/day
  5. CARVEDIOL [Concomitant]
     Dosage: 6.25 mg, 1x/day
  6. ISORDIL [Concomitant]
     Dosage: 30 mg, 2x/day
  7. PLAVIX [Concomitant]
     Dosage: 75 mg, 1x/day
  8. ACIPHEX [Concomitant]
     Dosage: 20 mg, 1x/day
  9. ENSURE [Concomitant]
     Dosage: UNK, 3x/day
  10. FLINTSTONES MULTIPLE VITAMINS [Concomitant]
     Dosage: UNK, 1x/day
     Route: 048

REACTIONS (6)
  - Renal cancer [Fatal]
  - Electrolyte imbalance [Fatal]
  - Bladder cancer [Fatal]
  - Aneurysm [Unknown]
  - Arterial disorder [Unknown]
  - Weight decreased [Unknown]
